FAERS Safety Report 14173743 (Version 2)
Quarter: 2018Q3

REPORT INFORMATION
  Report Type: Spontaneous
  Country: FR (occurrence: FR)
  Receive Date: 20171109
  Receipt Date: 20180904
  Transmission Date: 20181010
  Serious: Yes (Other)
  Sender: FDA-Public Use
  Company Number: FR-MERCK KGAA-2033671

PATIENT
  Age: 66 Year
  Sex: Female

DRUGS (1)
  1. NOVOTHYROX [Suspect]
     Active Substance: LEVOTHYROXINE SODIUM
     Indication: THYROID DISORDER
     Route: 048
     Dates: start: 201706, end: 20171002

REACTIONS (21)
  - Fatigue [Recovered/Resolved]
  - Hypoaesthesia [Recovered/Resolved]
  - Vertigo [Recovered/Resolved]
  - Muscle spasms [Recovered/Resolved]
  - Memory impairment [Recovered/Resolved]
  - Blood thyroid stimulating hormone [Not Recovered/Not Resolved]
  - Arthralgia [Recovered/Resolved]
  - Gastrointestinal disorder [Recovered/Resolved]
  - Sleep disorder [Recovered/Resolved]
  - Alopecia [Recovered/Resolved]
  - Poor quality sleep [Recovered/Resolved]
  - Chest pain [Recovered/Resolved]
  - Myalgia [Recovered/Resolved]
  - Asthenia [Recovered/Resolved]
  - Tachycardia [Recovered/Resolved]
  - Confusional state [Recovered/Resolved]
  - Dyspnoea [Recovered/Resolved]
  - Abdominal distension [Recovered/Resolved]
  - Dyspepsia [Recovered/Resolved]
  - Anxiety [Recovered/Resolved]
  - Balance disorder [Recovered/Resolved]

NARRATIVE: CASE EVENT DATE: 201707
